FAERS Safety Report 7186790-6 (Version None)
Quarter: 2010Q4

REPORT INFORMATION
  Report Type: 
  Country: None (occurrence: None)
  Receive Date: 20101222
  Receipt Date: 20101216
  Transmission Date: 20110411
  Serious: Yes (Hospitalization)
  Sender: FDA-Public Use
  Company Number: A0884291A

PATIENT
  Age: 33 Year
  Sex: Female

DRUGS (2)
  1. LAMICTAL [Suspect]
     Route: 048
  2. LAMOTRIGINE [Suspect]
     Route: 048

REACTIONS (4)
  - ERYSIPELAS [None]
  - HYPERSENSITIVITY [None]
  - RASH [None]
  - STEVENS-JOHNSON SYNDROME [None]
